FAERS Safety Report 7453895-1 (Version None)
Quarter: 2011Q2

REPORT INFORMATION
  Report Type: 
  Country: None (occurrence: None)
  Receive Date: 20110502
  Receipt Date: 20110414
  Transmission Date: 20111010
  Serious: No
  Sender: FDA-Public Use
  Company Number: US-BAYER-2011-033377

PATIENT
  Age: 53 Year
  Sex: Female

DRUGS (1)
  1. AVELOX [Suspect]
     Indication: SINUSITIS
     Dosage: 400 MG, QD
     Dates: start: 20110408, end: 20110410

REACTIONS (4)
  - NAUSEA [None]
  - DRY THROAT [None]
  - FEELING HOT [None]
  - HEADACHE [None]
